FAERS Safety Report 10290764 (Version 1)
Quarter: 2014Q3

REPORT INFORMATION
  Report Type: Spontaneous
  Country: GB (occurrence: None)
  Receive Date: 20140708
  Receipt Date: 20140708
  Transmission Date: 20150326
  Serious: Yes (Other)
  Sender: FDA-Public Use
  Company Number: AUR-APL-2014-07055

PATIENT
  Age: 36 Year
  Sex: Male
  Weight: 160 kg

DRUGS (1)
  1. TRAMADOL (TRAMADOL) UNKNOWN [Suspect]
     Active Substance: TRAMADOL
     Indication: BACK PAIN
     Route: 048
     Dates: start: 201306, end: 201404

REACTIONS (1)
  - Alopecia [None]

NARRATIVE: CASE EVENT DATE: 201310
